FAERS Safety Report 8803722 (Version 2)
Quarter: 2012Q4

REPORT INFORMATION
  Report Type: 
  Country: IT (occurrence: IT)
  Receive Date: 20120924
  Receipt Date: 20121009
  Transmission Date: 20130627
  Serious: Yes (Hospitalization)
  Sender: FDA-Public Use
  Company Number: IT-UCBSA-066483

PATIENT
  Age: 86 Year
  Sex: Female

DRUGS (6)
  1. MONOKET [Suspect]
     Dosage: DAILY DOSE :120 MILLIGRAMS, STRENGTH: 40MG
     Route: 048
     Dates: start: 20120210, end: 20120905
  2. COTAREG [Suspect]
     Indication: HYPERTENSION
     Dosage: DAILY DOSE: 172.5 MILLIGRAMS,  160/12.5 MG
     Route: 048
     Dates: start: 20120210, end: 20120905
  3. LASIX [Suspect]
     Dosage: DAILY DOSE: 50 MILLIGRAMS , STRENGTH: 25MG
     Route: 048
     Dates: start: 20120210, end: 20120905
  4. OMEPRAZOLE [Concomitant]
  5. CARDIOASPIRIN [Concomitant]
     Dosage: 100 MG
  6. KCL-RETARD [Concomitant]
     Dosage: KCL RETARD 600MG

REACTIONS (2)
  - Renal failure [Recovering/Resolving]
  - Hypotension [Recovering/Resolving]
